FAERS Safety Report 12725379 (Version 2)
Quarter: 2016Q3

REPORT INFORMATION
  Report Type: Spontaneous
  Country: PT (occurrence: PT)
  Receive Date: 20160908
  Receipt Date: 20160912
  Transmission Date: 20161109
  Serious: Yes (Other)
  Sender: FDA-Public Use
  Company Number: PT-TEVA-691161ISR

PATIENT
  Age: 72 Year
  Sex: Male

DRUGS (1)
  1. PACLITAXEL AUROVITAS [Suspect]
     Active Substance: PACLITAXEL
     Route: 042
     Dates: end: 20160824

REACTIONS (2)
  - Erythema [Recovered/Resolved]
  - Back pain [Recovered/Resolved]

NARRATIVE: CASE EVENT DATE: 20160824
